FAERS Safety Report 7445608-4 (Version None)
Quarter: 2011Q2

REPORT INFORMATION
  Report Type: 
  Country: None (occurrence: None)
  Receive Date: 20110429
  Receipt Date: 20110419
  Transmission Date: 20111010
  Serious: Yes (Hospitalization)
  Sender: FDA-Public Use
  Company Number: CA-ROCHE-772651

PATIENT
  Age: 35 Year
  Sex: Female

DRUGS (3)
  1. XELODA [Suspect]
     Dosage: STOP DATE REPORTED AS: 2011
     Route: 048
  2. HERCEPTIN [Concomitant]
     Route: 042
     Dates: start: 20020101
  3. CAELYX [Concomitant]

REACTIONS (1)
  - ENCEPHALOPATHY [None]
